FAERS Safety Report 5496012-X (Version None)
Quarter: 2007Q4

REPORT INFORMATION
  Report Type: 
  Country: None (occurrence: None)
  Receive Date: 20071025
  Receipt Date: 20071012
  Transmission Date: 20080405
  Serious: Yes (Hospitalization)
  Sender: FDA-Public Use
  Company Number: US-AMGEN-STX238660

PATIENT
  Sex: Female

DRUGS (1)
  1. ENBREL [Suspect]
     Indication: PSORIATIC ARTHROPATHY
     Route: 058
     Dates: start: 20030601

REACTIONS (5)
  - INCISION SITE ERYTHEMA [None]
  - LISTLESS [None]
  - MASTECTOMY [None]
  - POSTOPERATIVE WOUND INFECTION [None]
  - VOMITING [None]
